FAERS Safety Report 8401177-3 (Version None)
Quarter: 2012Q2

REPORT INFORMATION
  Report Type: 
  Country: None (occurrence: None)
  Receive Date: 20120530
  Receipt Date: 20120530
  Transmission Date: 20120825
  Serious: Yes (Other)
  Sender: FDA-Public Use
  Company Number: None

PATIENT
  Age: 52 Year
  Sex: Female
  Weight: 67.1324 kg

DRUGS (1)
  1. MORPHINE SULFATE [Suspect]
     Indication: NEURALGIA
     Dosage: 1 TABLET 3 TIMES PER DAY PO
     Route: 048
     Dates: start: 20120528, end: 20120528

REACTIONS (6)
  - TREMOR [None]
  - DRUG INEFFECTIVE [None]
  - HYPERHIDROSIS [None]
  - NAUSEA [None]
  - DIZZINESS [None]
  - DRUG WITHDRAWAL SYNDROME [None]
